FAERS Safety Report 15674194 (Version 1)
Quarter: 2018Q4

REPORT INFORMATION
  Report Type: Spontaneous
  Country: US (occurrence: US)
  Receive Date: 20181130
  Receipt Date: 20181130
  Transmission Date: 20190205
  Serious: No
  Sender: FDA-Public Use
  Company Number: US-TEVA-2018-US-979715

PATIENT
  Sex: Female

DRUGS (2)
  1. PROPRANOLOL HCL TABLETS ACTAVIS [Suspect]
     Active Substance: PROPRANOLOL HYDROCHLORIDE
     Indication: HEART RATE INCREASED
  2. PROPRANOLOL HCL TABLETS ACTAVIS [Suspect]
     Active Substance: PROPRANOLOL HYDROCHLORIDE
     Indication: HEADACHE
     Route: 065
     Dates: start: 2018

REACTIONS (3)
  - Product substitution issue [Unknown]
  - Palpitations [Unknown]
  - Panic attack [Unknown]

NARRATIVE: CASE EVENT DATE: 201811
